FAERS Safety Report 8602467-1 (Version None)
Quarter: 2012Q3

REPORT INFORMATION
  Report Type: 
  Country: None (occurrence: None)
  Receive Date: 20120817
  Receipt Date: 19940127
  Transmission Date: 20120928
  Serious: Yes (Other)
  Sender: FDA-Public Use
  Company Number: US-ROCHE-1099335

PATIENT
  Age: 58 Year
  Sex: Male

DRUGS (1)
  1. ACTIVASE [Suspect]
     Indication: ACUTE MYOCARDIAL INFARCTION
     Dates: start: 19931206

REACTIONS (4)
  - PAIN IN EXTREMITY [None]
  - AORTIC ANEURYSM [None]
  - HYPOAESTHESIA [None]
  - ILIAC ARTERY OCCLUSION [None]
